FAERS Safety Report 25598529 (Version 1)
Quarter: 2025Q3

REPORT INFORMATION
  Report Type: Spontaneous
  Country: KR (occurrence: KR)
  Receive Date: 20250723
  Receipt Date: 20250723
  Transmission Date: 20251021
  Serious: Yes (Other)
  Sender: BAUSCH AND LOMB
  Company Number: KR-BAUSCHBL-2025BNL008292

PATIENT
  Age: 59 Year
  Sex: Male

DRUGS (4)
  1. VISUDYNE [Suspect]
     Active Substance: VERTEPORFIN
     Indication: Retinal haemorrhage
     Route: 042
  2. VISUDYNE [Suspect]
     Active Substance: VERTEPORFIN
     Indication: Off label use
  3. AFLIBERCEPT [Concomitant]
     Active Substance: AFLIBERCEPT
     Indication: Retinal haemorrhage
  4. INDOCYANINE GREEN [Concomitant]
     Active Substance: INDOCYANINE GREEN
     Indication: Central serous chorioretinopathy

REACTIONS (4)
  - Subretinal fluid [Recovering/Resolving]
  - Detachment of retinal pigment epithelium [Recovering/Resolving]
  - Visual acuity reduced [Recovering/Resolving]
  - Off label use [Unknown]
